FAERS Safety Report 16030633 (Version 1)
Quarter: 2019Q1

REPORT INFORMATION
  Report Type: Spontaneous
  Country: US (occurrence: US)
  Receive Date: 20190304
  Receipt Date: 20190304
  Transmission Date: 20190418
  Serious: No
  Sender: FDA-Public Use
  Company Number: US-PFIZER INC-2019083317

PATIENT
  Age: 62 Year
  Sex: Female
  Weight: 73.48 kg

DRUGS (1)
  1. IBRANCE [Suspect]
     Active Substance: PALBOCICLIB
     Indication: BREAST CANCER METASTATIC
     Dosage: 125 MG, 1X/DAY, 21 DAYS^ SUPPLY
     Dates: start: 201509

REACTIONS (2)
  - Malaise [Unknown]
  - Appendix disorder [Recovering/Resolving]
